FAERS Safety Report 8023265-6 (Version None)
Quarter: 2012Q1

REPORT INFORMATION
  Report Type: 
  Country: None (occurrence: None)
  Receive Date: 20120104
  Receipt Date: 20111229
  Transmission Date: 20120608
  Serious: Yes (Other)
  Sender: FDA-Public Use
  Company Number: US-BAYER-2012-000097

PATIENT
  Age: 19 Year
  Sex: Female

DRUGS (2)
  1. YAZ [Suspect]
     Dosage: UNK
     Dates: start: 20050601, end: 20090801
  2. YASMIN [Suspect]
     Dosage: UNK
     Dates: start: 20030601, end: 20050601

REACTIONS (1)
  - THROMBOSIS [None]
